FAERS Safety Report 6083856-9 (Version None)
Quarter: 2009Q1

REPORT INFORMATION
  Report Type: 
  Country: None (occurrence: None)
  Receive Date: 20090217
  Receipt Date: 20090209
  Transmission Date: 20090719
  Serious: No
  Sender: FDA-Public Use
  Company Number: 20096206

PATIENT
  Sex: Male

DRUGS (1)
  1. LIORESAL [Suspect]
     Indication: MUSCLE SPASTICITY
     Dosage: 659 MCG DAILY INTRATHECAL
     Route: 037

REACTIONS (6)
  - COMMUNICATION DISORDER [None]
  - DEVICE FAILURE [None]
  - HYPERHIDROSIS [None]
  - MUSCLE SPASTICITY [None]
  - TACHYCARDIA [None]
  - TREATMENT NONCOMPLIANCE [None]
